FAERS Safety Report 4864480-X (Version None)
Quarter: 2005Q4

REPORT INFORMATION
  Report Type: 
  Country: None (occurrence: None)
  Receive Date: 20051222
  Receipt Date: 20050531
  Transmission Date: 20060501
  Serious: Yes (Hospitalization)
  Sender: FDA-Public Use
  Company Number: IE-BRISTOL-MYERS SQUIBB COMPANY-12989133

PATIENT
  Sex: Male

DRUGS (2)
  1. MODECATE [Suspect]
     Indication: PSYCHOTIC DISORDER
     Route: 030
  2. ANTIDEPRESSANT [Concomitant]
     Indication: DEPRESSION

REACTIONS (1)
  - STEVENS-JOHNSON SYNDROME [None]
